FAERS Safety Report 10373833 (Version 1)
Quarter: 2014Q1

REPORT INFORMATION
  Report Type: Spontaneous
  Country: US (occurrence: None)
  Receive Date: 20140306
  Receipt Date: 20140306
  Transmission Date: 20141002
  Serious: Yes (Hospitalization)
  Sender: FDA-Public Use
  Company Number: 163-21880-13084218

PATIENT
  Age: 80 Year
  Sex: Female

DRUGS (9)
  1. REVLIMID [Suspect]
     Indication: PLASMACYTOMA
     Dosage: 12-AUG-2013 - TEMPORARILY INTERRUPTED?10 MG, 21 IN 21 D, PO
     Route: 048
     Dates: start: 20130812
  2. AMBIEN (ZOLPIDEM TARTRATE) [Concomitant]
  3. ASPIRIN (ACETYLSALICYLIC ACID) [Concomitant]
  4. ATENOLOL [Concomitant]
  5. ATORVASTATIN CALCIUM [Concomitant]
  6. AZELASTINE HCL (AZELASTINE HYDROCHLORIDE) [Concomitant]
  7. COLACE (DOCUSATE SODIUM) [Concomitant]
  8. COZAAR (LOSARTAN POTASSIUM) [Concomitant]
  9. CRESTOR (ROSUVASTATIN) [Concomitant]

REACTIONS (2)
  - Pneumonia [None]
  - Hypotension [None]
